FAERS Safety Report 14367348 (Version 7)
Quarter: 2018Q4

REPORT INFORMATION
  Report Type: Spontaneous
  Country: AT (occurrence: AT)
  Receive Date: 20180109
  Receipt Date: 20181009
  Transmission Date: 20190204
  Serious: Yes (Life-Threatening, Hospitalization)
  Sender: FDA-Public Use
  Company Number: AT-CELGENEUS-AUT-20180100779

PATIENT
  Age: 75 Year
  Sex: Female
  Weight: 72 kg

DRUGS (23)
  1. TOLTERODIN [Concomitant]
     Active Substance: TOLTERODINE TARTRATE
     Indication: HYPERTONIC BLADDER
     Dosage: 2 MILLIGRAM
     Route: 048
     Dates: start: 20160719
  2. COLPERMIN [Concomitant]
     Active Substance: PEPPERMINT OIL
     Indication: ABDOMINAL DISCOMFORT
     Route: 048
     Dates: start: 20160719
  3. SODIUM BENZOATE [Concomitant]
     Active Substance: SODIUM BENZOATE
     Indication: PRODUCT USED FOR UNKNOWN INDICATION
     Route: 065
  4. FURO-SPIROBENE [Concomitant]
     Active Substance: FUROSEMIDE\SPIRONOLACTONE
     Indication: OEDEMA PERIPHERAL
     Dosage: 20 MILLIGRAM
     Route: 048
     Dates: start: 20160902
  5. OLEOVIT D3 [Concomitant]
     Active Substance: CHOLECALCIFEROL
     Indication: PROPHYLAXIS
     Dosage: 40 DROPS
     Route: 048
     Dates: start: 20160719
  6. GABAPENTIN. [Concomitant]
     Active Substance: GABAPENTIN
     Indication: PERIPHERAL SENSORY NEUROPATHY
  7. DEXAMETHASONE ORAL [Suspect]
     Active Substance: DEXAMETHASONE
     Indication: PLASMA CELL MYELOMA
     Dosage: 20 MILLIGRAM
     Route: 048
     Dates: start: 20171220, end: 20171227
  8. FURO-SPIROBENE [Concomitant]
     Active Substance: FUROSEMIDE\SPIRONOLACTONE
     Indication: PROPHYLAXIS
     Dosage: 20 MILLIGRAM
     Route: 048
     Dates: start: 20160902
  9. VITALUX [Concomitant]
     Active Substance: MINERALS\VITAMINS
     Indication: SUPPLEMENTATION THERAPY
     Dosage: 9 DROPS
     Route: 047
  10. ARANESP [Concomitant]
     Active Substance: DARBEPOETIN ALFA
     Dosage: .3 MILLILITER
     Route: 058
     Dates: start: 20170208
  11. DULOXETINE. [Concomitant]
     Active Substance: DULOXETINE
     Indication: ANTIDEPRESSANT THERAPY
     Dosage: 10 MILLIGRAM
     Route: 065
     Dates: start: 20160826
  12. FOLSAN [Concomitant]
     Active Substance: FOLIC ACID
     Indication: PYREXIA
     Dosage: 5 MILLIGRAM
     Route: 048
     Dates: start: 20160819
  13. CONCOR [Concomitant]
     Active Substance: BISOPROLOL FUMARATE
     Indication: CARDIOMYOPATHY
     Dosage: 2.5 MILLIGRAM
     Route: 048
  14. REVLIMID [Suspect]
     Active Substance: LENALIDOMIDE
     Indication: PLASMA CELL MYELOMA
     Dosage: 10 MILLIGRAM
     Route: 048
     Dates: start: 20171220, end: 20171227
  15. PANTOPRAZOLE [Concomitant]
     Active Substance: PANTOPRAZOLE
     Indication: GASTRITIS PROPHYLAXIS
     Dosage: 40 MILLIGRAM
     Route: 048
     Dates: start: 20160720
  16. BISOPROLOL SAN [Concomitant]
     Indication: PRODUCT USED FOR UNKNOWN INDICATION
     Route: 065
  17. DHEA [Concomitant]
     Active Substance: PRASTERONE
     Indication: SUPPLEMENTATION THERAPY
     Dosage: 25 MILLIGRAM
     Route: 048
  18. CALCIUM + VIT D [Concomitant]
     Active Substance: CALCIUM\VITAMIN D
     Indication: SUPPLEMENTATION THERAPY
     Dosage: 2 DOSAGE FORMS
     Route: 048
     Dates: start: 20170111
  19. ZOLPIDEM [Concomitant]
     Active Substance: ZOLPIDEM\ZOLPIDEM TARTRATE
     Indication: INSOMNIA
     Dosage: 10 MILLIGRAM
     Route: 048
     Dates: start: 20160719
  20. ARANESP [Concomitant]
     Active Substance: DARBEPOETIN ALFA
     Indication: ANAEMIA
     Dosage: 10 MICROGRAM
     Route: 058
     Dates: start: 20170208
  21. GABAPENTIN. [Concomitant]
     Active Substance: GABAPENTIN
     Indication: EPILEPSY
     Dosage: 600 MILLIGRAM
     Route: 048
     Dates: start: 20161012
  22. CYMBALTA [Concomitant]
     Active Substance: DULOXETINE HYDROCHLORIDE
     Indication: EATING DISORDER
     Dosage: 30 MILLIGRAM
     Route: 048
     Dates: start: 20160719
  23. LEVEBON [Concomitant]
     Indication: EPILEPSY
     Dosage: 1000 MILLIGRAM
     Route: 048

REACTIONS (3)
  - C-reactive protein increased [Recovered/Resolved]
  - Renal failure [Recovered/Resolved]
  - Personality change [Recovered/Resolved with Sequelae]

NARRATIVE: CASE EVENT DATE: 20171227
